FAERS Safety Report 13671306 (Version 1)
Quarter: 2017Q2

REPORT INFORMATION
  Report Type: Spontaneous
  Country: US (occurrence: US)
  Receive Date: 20170620
  Receipt Date: 20170620
  Transmission Date: 20170830
  Serious: No
  Sender: FDA-Public Use
  Company Number: US-ROCHE-653831

PATIENT
  Age: 56 Year
  Sex: Male

DRUGS (1)
  1. XELODA [Suspect]
     Active Substance: CAPECITABINE
     Indication: PRODUCT USED FOR UNKNOWN INDICATION
     Dosage: FORM: PILL, WEEK 6
     Route: 065

REACTIONS (3)
  - Purulent discharge [Unknown]
  - Ill-defined disorder [Recovering/Resolving]
  - Pain [Recovered/Resolved]
